FAERS Safety Report 18990525 (Version 1)
Quarter: 2021Q1

REPORT INFORMATION
  Report Type: Spontaneous
  Country: US (occurrence: US)
  Receive Date: 20210310
  Receipt Date: 20210310
  Transmission Date: 20210420
  Serious: Yes (Other)
  Sender: FDA-Public Use
  Company Number: NVSC2021US049219

PATIENT
  Age: 82 Year
  Sex: Female
  Weight: 71.67 kg

DRUGS (1)
  1. XIIDRA [Suspect]
     Active Substance: LIFITEGRAST
     Indication: PRODUCT USED FOR UNKNOWN INDICATION
     Dosage: 50 MG, ONE DROP BID
     Route: 047

REACTIONS (5)
  - Vision blurred [Recovered/Resolved]
  - Thermal burns of eye [Recovered/Resolved]
  - Eye infection [Recovered/Resolved]
  - Headache [Recovered/Resolved]
  - Abdominal discomfort [Recovered/Resolved]
